FAERS Safety Report 7997202-4 (Version None)
Quarter: 2011Q4

REPORT INFORMATION
  Report Type: 
  Country: None (occurrence: None)
  Receive Date: 20111221
  Receipt Date: 20111216
  Transmission Date: 20120403
  Serious: Yes (Death, Other)
  Sender: FDA-Public Use
  Company Number: PHHY2011AR106691

PATIENT
  Sex: Female

DRUGS (1)
  1. EXELON [Suspect]
     Indication: DEMENTIA ALZHEIMER'S TYPE
     Dosage: 9.5 MG\24H
     Route: 062
     Dates: start: 20090501

REACTIONS (4)
  - DYSPNOEA [None]
  - CARDIOPULMONARY FAILURE [None]
  - RENAL DISORDER [None]
  - DEMENTIA ALZHEIMER'S TYPE [None]
